FAERS Safety Report 9868009 (Version 1)
Quarter: 2014Q1

REPORT INFORMATION
  Report Type: Spontaneous
  Country: US (occurrence: US)
  Receive Date: 20140204
  Receipt Date: 20140204
  Transmission Date: 20141002
  Serious: No
  Sender: FDA-Public Use
  Company Number: US-GE HEALTHCARE MEDICAL DIAGNOSTICS-OMPQ-PR-1401S-0060

PATIENT
  Age: 68 Year
  Sex: Female

DRUGS (8)
  1. OMNIPAQUE [Suspect]
     Indication: HAEMATURIA
     Route: 042
     Dates: start: 20140117, end: 20140117
  2. OMNIPAQUE [Suspect]
     Indication: DIAGNOSTIC PROCEDURE
  3. SYNTHROID [Concomitant]
  4. SIMVASTATIN [Concomitant]
  5. LISINOPRIL [Concomitant]
  6. METFORMIN SAXAGLIPTIN (KOMBIGLYZE) [Concomitant]
  7. ASA [Concomitant]
  8. CALCIUM [Concomitant]

REACTIONS (4)
  - Erythema [Unknown]
  - Aphasia [Recovered/Resolved]
  - Unresponsive to stimuli [Unknown]
  - Faecal incontinence [Unknown]
